FAERS Safety Report 6861305-8 (Version None)
Quarter: 2010Q3

REPORT INFORMATION
  Report Type: 
  Country: None (occurrence: None)
  Receive Date: 20100715
  Receipt Date: 20100709
  Transmission Date: 20110219
  Serious: Yes (Hospitalization)
  Sender: FDA-Public Use
  Company Number: 2010SP038102

PATIENT

DRUGS (2)
  1. PEG-INTRON [Suspect]
     Dosage: QW; SC
     Route: 058
     Dates: start: 20100619, end: 20100704
  2. REBETOL [Suspect]
     Dosage: QD; PO
     Route: 048
     Dates: start: 20100619, end: 20100704

REACTIONS (3)
  - CHEST PAIN [None]
  - COUGH [None]
  - MULTIPLE MYELOMA [None]
